FAERS Safety Report 20363606 (Version 1)
Quarter: 2022Q1

REPORT INFORMATION
  Report Type: Spontaneous
  Country: US (occurrence: None)
  Receive Date: 20220121
  Receipt Date: 20220121
  Transmission Date: 20220423
  Serious: No
  Sender: FDA-Public Use
  Company Number: None

PATIENT
  Sex: Male

DRUGS (3)
  1. PROMACTA [Suspect]
     Active Substance: ELTROMBOPAG OLAMINE
     Indication: Immune thrombocytopenia
     Route: 049
     Dates: start: 20201207
  2. VENCLEXTA [Suspect]
     Active Substance: VENETOCLAX
     Dates: start: 20190315
  3. FINASTERIDE [Suspect]
     Active Substance: FINASTERIDE

REACTIONS (5)
  - Platelet count decreased [None]
  - Drug ineffective [None]
  - Depression [None]
  - Nausea [None]
  - Pulmonary mass [None]
